FAERS Safety Report 4611710-5 (Version None)
Quarter: 2005Q1

REPORT INFORMATION
  Report Type: 
  Country: None (occurrence: None)
  Receive Date: 20050317
  Receipt Date: 20050201
  Transmission Date: 20050727
  Serious: Yes (Hospitalization)
  Sender: FDA-Public Use
  Company Number: US-BRISTOL-MYERS SQUIBB COMPANY-12848628

PATIENT
  Age: 48 Year
  Sex: Female
  Weight: 93 kg

DRUGS (2)
  1. DEFINITY [Suspect]
     Indication: TRANSIENT ISCHAEMIC ATTACK
     Route: 042
     Dates: start: 20050201, end: 20050201
  2. TYLENOL (CAPLET) [Concomitant]

REACTIONS (4)
  - ASTHENIA [None]
  - FEELING ABNORMAL [None]
  - HYPOAESTHESIA [None]
  - SYNCOPE [None]
